FAERS Safety Report 9931223 (Version 2)
Quarter: 2014Q2

REPORT INFORMATION
  Report Type: Spontaneous
  Country: HU (occurrence: HU)
  Receive Date: 20140228
  Receipt Date: 20140529
  Transmission Date: 20141212
  Serious: Yes (Other)
  Sender: FDA-Public Use
  Company Number: HU-RANBAXY-2014US-78445

PATIENT
  Sex: 0

DRUGS (8)
  1. PANTOPRAZOL [Suspect]
     Indication: PROPHYLAXIS AGAINST GASTROINTESTINAL ULCER
     Dosage: 40 MG, ONCE
     Route: 041
  2. OXALIPLATIN [Suspect]
     Indication: COLORECTAL CANCER
     Dosage: UNK
     Route: 041
  3. OXALIPLATIN [Suspect]
     Indication: COLORECTAL CANCER
  4. DEXAMETHASONE [Suspect]
     Indication: PREMEDICATION
     Route: 042
  5. CALCIUM GLUCONATE [Suspect]
     Indication: PREMEDICATION
     Route: 042
  6. CHLOROPYRAMINE [Suspect]
     Indication: PREMEDICATION
     Route: 042
  7. FOLINIC ACID [Concomitant]
     Indication: PRODUCT USED FOR UNKNOWN INDICATION
     Route: 065
  8. FLUOROURACIL [Concomitant]
     Indication: PRODUCT USED FOR UNKNOWN INDICATION
     Route: 065

REACTIONS (2)
  - Hypersensitivity [Recovered/Resolved]
  - Off label use [Recovered/Resolved]
